FAERS Safety Report 15522973 (Version 4)
Quarter: 2022Q2

REPORT INFORMATION
  Report Type: Report from Study
  Country: BR (occurrence: BR)
  Receive Date: 20181017
  Receipt Date: 20220504
  Transmission Date: 20220720
  Serious: Yes (Hospitalization)
  Sender: FDA-Public Use
  Company Number: BR-ALEXION-A201813646

PATIENT
  Age: 36 Year
  Sex: Male
  Weight: 84 kg

DRUGS (4)
  1. SOLIRIS [Suspect]
     Active Substance: ECULIZUMAB
     Indication: Paroxysmal nocturnal haemoglobinuria
     Dosage: 600 MG, QW
     Route: 042
     Dates: start: 20150327, end: 20150417
  2. SOLIRIS [Suspect]
     Active Substance: ECULIZUMAB
     Dosage: 900 MG, Q2W
     Route: 042
     Dates: start: 20150424
  3. SOLIRIS [Suspect]
     Active Substance: ECULIZUMAB
     Dosage: UNK
     Route: 042
     Dates: start: 201710
  4. WARFARIN SODIUM [Concomitant]
     Active Substance: WARFARIN SODIUM
     Indication: Thrombosis prophylaxis
     Dosage: 2 DF (5 MG), QD
     Route: 048
     Dates: start: 2015

REACTIONS (11)
  - Condition aggravated [Unknown]
  - Gait disturbance [Unknown]
  - Yellow skin [Unknown]
  - Malaise [Unknown]
  - Ocular icterus [Recovered/Resolved]
  - Haematuria [Unknown]
  - Chromaturia [Recovered/Resolved]
  - Pallor [Recovered/Resolved]
  - Inappropriate schedule of product administration [Recovered/Resolved]
  - Fatigue [Recovered/Resolved]
  - Abdominal pain [Recovered/Resolved]

NARRATIVE: CASE EVENT DATE: 20171001
